FAERS Safety Report 18710281 (Version 2)
Quarter: 2021Q1

REPORT INFORMATION
  Report Type: Spontaneous
  Country: HN (occurrence: HN)
  Receive Date: 20210107
  Receipt Date: 20210119
  Transmission Date: 20210419
  Serious: Yes (Death, Other)
  Sender: FDA-Public Use
  Company Number: HN-009507513-2012HND013111

PATIENT
  Age: 68 Year
  Sex: Female

DRUGS (1)
  1. HYZAAR FORTE [Suspect]
     Active Substance: HYDROCHLOROTHIAZIDE\LOSARTAN POTASSIUM
     Indication: HYPERTENSION
     Dosage: 1 TABLET OF 25 MG DAILY, STARTED THERAPY OVER 10 YEARS
     Route: 048
     Dates: end: 202011

REACTIONS (4)
  - Diabetes mellitus [Unknown]
  - Infarction [Fatal]
  - Hepatic cancer [Unknown]
  - Hepatic vascular thrombosis [Unknown]

NARRATIVE: CASE EVENT DATE: 202011
